FAERS Safety Report 15436404 (Version 2)
Quarter: 2018Q4

REPORT INFORMATION
  Report Type: Spontaneous
  Country: BR (occurrence: BR)
  Receive Date: 20180927
  Receipt Date: 20181005
  Transmission Date: 20190204
  Serious: Yes (Other)
  Sender: FDA-Public Use
  Company Number: BR-PFIZER INC-2018384337

PATIENT
  Sex: Female

DRUGS (2)
  1. LORAX [Suspect]
     Active Substance: LORAZEPAM
     Indication: INSOMNIA
     Dosage: 4 MG, DAILY (1MG WHEN ALTERED AND 3MG AT NIGHT)
  2. LORAX [Suspect]
     Active Substance: LORAZEPAM
     Indication: MOOD ALTERED

REACTIONS (2)
  - Dependence [Unknown]
  - Dementia Alzheimer^s type [Unknown]
